FAERS Safety Report 8548296-9 (Version None)
Quarter: 2012Q3

REPORT INFORMATION
  Report Type: 
  Country: None (occurrence: None)
  Receive Date: 20120730
  Receipt Date: 20120717
  Transmission Date: 20120928
  Serious: No
  Sender: FDA-Public Use
  Company Number: US-JNJFOC-20120609980

PATIENT
  Sex: Male
  Weight: 86.18 kg

DRUGS (9)
  1. CYMBALTA [Concomitant]
     Route: 048
     Dates: start: 20040101
  2. DURAGESIC-100 [Suspect]
     Indication: PAIN
     Route: 062
  3. SKELAXIN [Concomitant]
     Indication: MUSCLE RELAXANT THERAPY
     Route: 048
  4. PRAVASTATIN [Concomitant]
     Indication: BLOOD CHOLESTEROL
     Route: 048
     Dates: start: 20040101
  5. CLONIDINE [Concomitant]
     Indication: BLOOD PRESSURE
     Route: 048
     Dates: start: 20040101
  6. RANITIDINE [Concomitant]
     Indication: DYSPEPSIA
     Route: 048
     Dates: start: 20040101
  7. PROVIGIL [Concomitant]
     Indication: SLEEP DISORDER
     Route: 048
     Dates: start: 20040101
  8. DURAGESIC-75 [Suspect]
     Indication: PAIN
     Route: 062
     Dates: start: 20031201
  9. DILTIAZEM [Concomitant]
     Indication: BLOOD PRESSURE
     Route: 048
     Dates: start: 20040101

REACTIONS (6)
  - WRONG TECHNIQUE IN DRUG USAGE PROCESS [None]
  - PRODUCT QUALITY ISSUE [None]
  - COLD SWEAT [None]
  - PAIN [None]
  - FEELING ABNORMAL [None]
  - HYPERHIDROSIS [None]
